FAERS Safety Report 9806478 (Version 2)
Quarter: 2014Q1

REPORT INFORMATION
  Report Type: Spontaneous
  Country: US (occurrence: US)
  Receive Date: 20140109
  Receipt Date: 20140128
  Transmission Date: 20141002
  Serious: Yes (Death)
  Sender: FDA-Public Use
  Company Number: US-MERCK-1401USA001773

PATIENT
  Age: 77 Year
  Sex: Male

DRUGS (1)
  1. NOXAFIL [Suspect]
     Dosage: 200 MG, UNK
     Route: 048
     Dates: start: 2013

REACTIONS (1)
  - Death [Fatal]
